FAERS Safety Report 6119929-1 (Version None)
Quarter: 2009Q1

REPORT INFORMATION
  Report Type: 
  Country: None (occurrence: None)
  Receive Date: 20090316
  Receipt Date: 20090303
  Transmission Date: 20090719
  Serious: Yes (Other)
  Sender: FDA-Public Use
  Company Number: FR-ROCHE-620405

PATIENT
  Age: 52 Year
  Sex: Female

DRUGS (1)
  1. MIRCERA [Suspect]
     Route: 065

REACTIONS (2)
  - ANAEMIA [None]
  - IRON DEFICIENCY [None]
